FAERS Safety Report 9297076 (Version 1)
Quarter: 2013Q2

REPORT INFORMATION
  Report Type: Spontaneous
  Country: US (occurrence: US)
  Receive Date: 20130519
  Receipt Date: 20130519
  Transmission Date: 20140414
  Serious: Yes (Hospitalization, Congenital Anomaly)
  Sender: FDA-Public Use
  Company Number: US-MYLANLABS-2013S1010019

PATIENT
  Sex: Male

DRUGS (2)
  1. LITHIUM [Suspect]
     Indication: SCHIZOPHRENIA
     Dosage: 900MG
     Route: 064
  2. CLOZAPINE [Concomitant]
     Indication: SCHIZOPHRENIA
     Dosage: 200MG
     Route: 064

REACTIONS (8)
  - Ductus arteriosus premature closure [Not Recovered/Not Resolved]
  - Congenital tricuspid valve incompetence [Not Recovered/Not Resolved]
  - Persistent foetal circulation [Not Recovered/Not Resolved]
  - Right atrial dilatation [Not Recovered/Not Resolved]
  - Dilatation ventricular [Not Recovered/Not Resolved]
  - Cyanosis [Recovered/Resolved]
  - Metabolic acidosis [Recovered/Resolved]
  - Foetal exposure during pregnancy [Recovered/Resolved]
